FAERS Safety Report 5079219-5 (Version None)
Quarter: 2006Q3

REPORT INFORMATION
  Report Type: 
  Country: None (occurrence: None)
  Receive Date: 20060814
  Receipt Date: 20060804
  Transmission Date: 20061208
  Serious: Yes (Hospitalization)
  Sender: FDA-Public Use
  Company Number: 2006SE04249

PATIENT
  Age: 26146 Day
  Sex: Male
  Weight: 90 kg

DRUGS (16)
  1. CANDESARTAN CILEXETIL [Suspect]
     Indication: CARDIAC FAILURE CHRONIC
     Route: 048
     Dates: start: 20051201
  2. DIGITOXIN [Concomitant]
     Indication: CARDIAC FAILURE CHRONIC
     Route: 048
     Dates: start: 19940901
  3. MOLSIDORMINE [Concomitant]
     Indication: ANGINA PECTORIS
     Route: 048
     Dates: start: 20050308, end: 20051118
  4. MOLSIDORMINE [Concomitant]
     Indication: CARDIAC FAILURE CHRONIC
     Route: 048
     Dates: start: 20050308, end: 20051118
  5. MOLSIDORMINE [Concomitant]
     Route: 048
     Dates: start: 20051119
  6. MOLSIDORMINE [Concomitant]
     Route: 048
     Dates: start: 20051119
  7. ENALAPRIL MALEATE [Concomitant]
     Indication: CARDIAC FAILURE CHRONIC
     Route: 048
     Dates: start: 20060308
  8. BISOPROLOL FUMARATE [Concomitant]
     Indication: CARDIAC FAILURE CHRONIC
     Route: 048
     Dates: start: 20050308, end: 20060327
  9. BISOPROLOL FUMARATE [Concomitant]
     Route: 048
     Dates: start: 20060328
  10. ALLOPURINOL [Concomitant]
     Indication: GOUT
     Route: 048
     Dates: start: 20020801
  11. ALLOPURINOL [Concomitant]
     Indication: PROPHYLAXIS
     Route: 048
     Dates: start: 20020801
  12. FUROSEMIDE [Concomitant]
     Indication: CARDIAC FAILURE CHRONIC
     Route: 048
     Dates: start: 20020801, end: 20060327
  13. PHENPROCOUMON [Concomitant]
     Indication: THROMBOSIS PROPHYLAXIS
     Route: 048
     Dates: start: 19940901
  14. INSULIN [Concomitant]
     Indication: DIABETES MELLITUS
     Route: 058
     Dates: start: 20020801
  15. METFORMIN [Concomitant]
     Indication: DIABETES MELLITUS
     Route: 048
     Dates: start: 20020801
  16. TRAMADOL HCL [Concomitant]
     Indication: PAIN
     Route: 048

REACTIONS (7)
  - CARDIAC FAILURE ACUTE [None]
  - ELECTROCARDIOGRAM REPOLARISATION ABNORMALITY [None]
  - HYPOKALAEMIA [None]
  - NOCTURIA [None]
  - PLEURAL EFFUSION [None]
  - RESPIRATORY FAILURE [None]
  - RESTRICTIVE PULMONARY DISEASE [None]
